FAERS Safety Report 6902420-X (Version None)
Quarter: 2010Q3

REPORT INFORMATION
  Report Type: 
  Country: None (occurrence: None)
  Receive Date: 20100802
  Receipt Date: 20100802
  Transmission Date: 20110219
  Serious: Yes (Hospitalization)
  Sender: FDA-Public Use
  Company Number: None

PATIENT
  Age: 78 Year
  Sex: Male
  Weight: 80 kg

DRUGS (1)
  1. RIFAMPIN [Suspect]
     Indication: BACTERIAL DISEASE CARRIER
     Dosage: 300 MG BID PO
     Route: 048
     Dates: start: 20100709, end: 20100728

REACTIONS (1)
  - RENAL FAILURE ACUTE [None]
